FAERS Safety Report 25764409 (Version 1)
Quarter: 2025Q3

REPORT INFORMATION
  Report Type: Spontaneous
  Country: US (occurrence: US)
  Receive Date: 20250905
  Receipt Date: 20250905
  Transmission Date: 20251021
  Serious: No
  Sender: DOMPE FARMACEUTICI
  Company Number: US-FARMAPROD-202502-0423

PATIENT
  Sex: Female
  Weight: 63.96 kg

DRUGS (5)
  1. OXERVATE [Suspect]
     Active Substance: CENEGERMIN-BKBJ
     Indication: Neurotrophic keratopathy
     Route: 047
     Dates: start: 20250130
  2. OXERVATE [Suspect]
     Active Substance: CENEGERMIN-BKBJ
     Indication: Hypoaesthesia eye
  3. VITAMIN D2 [Concomitant]
     Active Substance: ERGOCALCIFEROL
  4. DICLOFENAC SODIUM [Concomitant]
     Active Substance: DICLOFENAC SODIUM
  5. MECLIZINE HYDROCHLORIDE [Concomitant]
     Active Substance: MECLIZINE HYDROCHLORIDE

REACTIONS (6)
  - Periorbital pain [Unknown]
  - Photophobia [Unknown]
  - Eye pain [Unknown]
  - Eye irritation [Unknown]
  - Eye pruritus [Unknown]
  - Vision blurred [Unknown]
